FAERS Safety Report 8825844 (Version 1)
Quarter: 2012Q4

REPORT INFORMATION
  Report Type: 
  Country: US (occurrence: US)
  Receive Date: 20121004
  Receipt Date: 20121004
  Transmission Date: 20130627
  Serious: No
  Sender: FDA-Public Use
  Company Number: US-VERTEX PHARMACEUTICAL INC.-2012-021686

PATIENT
  Sex: Male

DRUGS (1)
  1. VX-950 [Suspect]
     Indication: HEPATITIS C
     Dosage: 750 mg, tid
     Route: 048

REACTIONS (5)
  - Weight increased [Unknown]
  - Insomnia [Unknown]
  - Depressed mood [Unknown]
  - Fatigue [Unknown]
  - Pruritus generalised [Unknown]
